FAERS Safety Report 7473715-9 (Version None)
Quarter: 2011Q2

REPORT INFORMATION
  Report Type: 
  Country: None (occurrence: None)
  Receive Date: 20110511
  Receipt Date: 20110505
  Transmission Date: 20111010
  Serious: Yes (Hospitalization)
  Sender: FDA-Public Use
  Company Number: DE-PFIZER INC-2011096940

PATIENT
  Age: 66 Year
  Sex: Female
  Weight: 91 kg

DRUGS (17)
  1. SEVREDOL [Concomitant]
     Dosage: 10 MG, UNK
  2. PANTOPRAZOLE [Concomitant]
     Dosage: 40 MG, UNK
  3. NITROLINGUAL [Concomitant]
  4. SUNITINIB MALATE [Suspect]
     Dosage: UNK
     Dates: start: 20110415, end: 20110503
  5. MST [Concomitant]
     Dosage: 10 MG, UNK
  6. ZOPICLONE [Concomitant]
     Dosage: 7.5 MG, UNK
  7. NOVAMINOSULFON [Concomitant]
     Dosage: 0.5 G, UNK
  8. MCP ^RATIOPHARM^ [Concomitant]
     Dosage: 100ML/ 1 DROP
  9. VOMEX A ^ENDOPHARM^ [Concomitant]
  10. ADALAT [Concomitant]
     Dosage: 5 MG, UNK
  11. DELIX [Concomitant]
     Dosage: 2.5 MG, UNK
  12. TEPILTA [Concomitant]
     Dosage: 10 ML, UNK
  13. BAYOTENSIN AKUT [Concomitant]
  14. AMARYL [Concomitant]
     Dosage: 2 MG, UNK
  15. LUMIGAN [Concomitant]
     Dosage: UNKNOWN
  16. STEROFUNDIN [Concomitant]
     Dosage: 500 ML, UNK
  17. STEROFUNDIN [Concomitant]
     Dosage: 1000 ML, UNK

REACTIONS (13)
  - LEUKOCYTOSIS [None]
  - THROMBOCYTOPENIA [None]
  - GAMMA-GLUTAMYLTRANSFERASE INCREASED [None]
  - GENERAL PHYSICAL HEALTH DETERIORATION [None]
  - BLOOD LACTATE DEHYDROGENASE INCREASED [None]
  - BACK PAIN [None]
  - ASTHENIA [None]
  - BLOOD URIC ACID INCREASED [None]
  - LYMPHOPENIA [None]
  - MUCOSAL INFLAMMATION [None]
  - BLOOD CREATININE INCREASED [None]
  - BLOOD GLUCOSE INCREASED [None]
  - BLOOD UREA INCREASED [None]
